FAERS Safety Report 20795626 (Version 1)
Quarter: 2022Q2

REPORT INFORMATION
  Report Type: Spontaneous
  Country: US (occurrence: None)
  Receive Date: 20220506
  Receipt Date: 20220506
  Transmission Date: 20220721
  Serious: Yes (unspecified)
  Sender: FDA-Public Use
  Company Number: None

PATIENT
  Age: 35 Year
  Sex: Female
  Weight: 57.15 kg

DRUGS (4)
  1. .DELTA.8-TETRAHYDROCANNABINOL\HERBALS [Suspect]
     Active Substance: .DELTA.8-TETRAHYDROCANNABINOL\HERBALS
     Indication: Anxiety disorder
     Dosage: OTHER QUANTITY : 1 1/4 OF[INVALID];?FREQUENCY : 4 TIMES A DAY;?
     Route: 048
     Dates: start: 20220505, end: 20220505
  2. LEXAPRO [Concomitant]
     Active Substance: ESCITALOPRAM OXALATE
  3. ATIVAN [Concomitant]
     Active Substance: LORAZEPAM
  4. VITAMINS [Concomitant]
     Active Substance: VITAMINS

REACTIONS (3)
  - Burning sensation [None]
  - Feeling of body temperature change [None]
  - Claustrophobia [None]

NARRATIVE: CASE EVENT DATE: 20220505
